FAERS Safety Report 6699441-1 (Version None)
Quarter: 2010Q2

REPORT INFORMATION
  Report Type: 
  Country: None (occurrence: None)
  Receive Date: 20100427
  Receipt Date: 20100419
  Transmission Date: 20101027
  Serious: Yes (Life-Threatening)
  Sender: FDA-Public Use
  Company Number: JP-MERCK-1004USA03882

PATIENT
  Age: 70 Year
  Sex: Female

DRUGS (6)
  1. JANUVIA [Suspect]
     Indication: DIABETES MELLITUS
     Route: 048
     Dates: start: 20100407, end: 20100414
  2. AMARYL [Suspect]
     Indication: DIABETES MELLITUS
     Route: 048
     Dates: start: 20010606
  3. ACTOS [Suspect]
     Indication: DIABETES MELLITUS
     Route: 048
     Dates: start: 20010606
  4. LASIX [Suspect]
     Indication: OEDEMA
     Route: 048
     Dates: start: 20061117
  5. UNASYN [Concomitant]
     Indication: PNEUMONIA
     Route: 042
  6. THEODRIP [Concomitant]
     Indication: PNEUMONIA
     Route: 042

REACTIONS (1)
  - CARDIAC FAILURE [None]
